FAERS Safety Report 5947707-2 (Version None)
Quarter: 2008Q4

REPORT INFORMATION
  Report Type: 
  Country: None (occurrence: None)
  Receive Date: 20081110
  Receipt Date: 20081110
  Transmission Date: 20090506
  Serious: Yes (Disabling)
  Sender: FDA-Public Use
  Company Number: None

PATIENT
  Sex: Female

DRUGS (1)
  1. XIENCE V EVEROLIMUS ELUTING CORONARY STENT SYSTEM [Suspect]
     Indication: MYOCARDIAL INFARCTION
     Dates: start: 20081017, end: 20081017

REACTIONS (3)
  - BLOOD PRESSURE DECREASED [None]
  - DEVICE MALFUNCTION [None]
  - PRODUCT QUALITY ISSUE [None]
